FAERS Safety Report 20951222 (Version 10)
Quarter: 2022Q3

REPORT INFORMATION
  Report Type: Spontaneous
  Country: US (occurrence: US)
  Receive Date: 20220613
  Receipt Date: 20220812
  Transmission Date: 20221027
  Serious: No
  Sender: FDA-Public Use
  Company Number: US-PFIZER INC-202200824775

PATIENT
  Age: 74 Year
  Sex: Male

DRUGS (3)
  1. DEXTROSE [Suspect]
     Active Substance: DEXTROSE
     Dosage: UNK
  2. WATER [Suspect]
     Active Substance: WATER
     Dosage: UNK
  3. KENALOG [Suspect]
     Active Substance: TRIAMCINOLONE ACETONIDE
     Dosage: UNK

REACTIONS (3)
  - Hypersensitivity [Unknown]
  - Periarthritis [Unknown]
  - Joint swelling [Unknown]

NARRATIVE: CASE EVENT DATE: 20220201
